FAERS Safety Report 9216772 (Version 2)
Quarter: 2013Q2

REPORT INFORMATION
  Report Type: Spontaneous
  Country: US (occurrence: US)
  Receive Date: 20130408
  Receipt Date: 20130506
  Transmission Date: 20140414
  Serious: No
  Sender: FDA-Public Use
  Company Number: US-PFIZER INC-2013104519

PATIENT
  Sex: Female

DRUGS (2)
  1. HYDROXYZINE PAMOATE [Suspect]
     Dosage: UNK
     Dates: start: 201210
  2. BENADRYL [Suspect]
     Dosage: UNK

REACTIONS (4)
  - Urticaria [Unknown]
  - Rash [Unknown]
  - Pruritus [Unknown]
  - Rash generalised [Unknown]
